FAERS Safety Report 6763507-8 (Version None)
Quarter: 2010Q2

REPORT INFORMATION
  Report Type: 
  Country: None (occurrence: None)
  Receive Date: 20100610
  Receipt Date: 20100601
  Transmission Date: 20101027
  Serious: Yes (Death)
  Sender: FDA-Public Use
  Company Number: GB-NOVOPROD-309402

PATIENT

DRUGS (3)
  1. NOVOSEVEN [Suspect]
     Indication: ACQUIRED HAEMOPHILIA
  2. FACTOR VIII [Suspect]
     Indication: ACQUIRED HAEMOPHILIA
  3. FEIBA                              /01034301/ [Concomitant]
     Indication: FACTOR VIII INHIBITION
     Dosage: EVERY 6 HOURS

REACTIONS (1)
  - HAEMATOMA [None]
